FAERS Safety Report 7064444-4 (Version None)
Quarter: 2010Q4

REPORT INFORMATION
  Report Type: 
  Country: None (occurrence: None)
  Receive Date: 20101027
  Receipt Date: 20101020
  Transmission Date: 20110411
  Serious: Yes (Hospitalization)
  Sender: FDA-Public Use
  Company Number: PHHY2009DE51537

PATIENT
  Sex: Female
  Weight: 90 kg

DRUGS (6)
  1. ALISKIREN ALI+ [Suspect]
     Indication: HYPERTENSION
     Dosage: UNK
     Dates: start: 20090210, end: 20090828
  2. METO [Concomitant]
     Dosage: 2 DF, QD
  3. MARCUMAR [Concomitant]
  4. RAMIPRIL [Concomitant]
     Dosage: UNK
  5. BETA BLOCKING AGENTS [Concomitant]
  6. PLATELETS [Concomitant]

REACTIONS (4)
  - AGITATION [None]
  - HYPERTENSIVE CRISIS [None]
  - MICTURITION URGENCY [None]
  - PAIN [None]
